FAERS Safety Report 16088199 (Version 2)
Quarter: 2019Q3

REPORT INFORMATION
  Report Type: Report from Study
  Country: DE (occurrence: DE)
  Receive Date: 20190319
  Receipt Date: 20190715
  Transmission Date: 20191004
  Serious: Yes (Hospitalization)
  Sender: FDA-Public Use
  Company Number: DE-ROCHE-2278733

PATIENT
  Age: 42 Year
  Sex: Female
  Weight: 67.5 kg

DRUGS (9)
  1. PERTUZUMAB. [Suspect]
     Active Substance: PERTUZUMAB
     Indication: HER-2 POSITIVE BREAST CANCER
     Dosage: LOADING DOSE?PERTUZUMAB WILL BE ADMINISTERED AS A FIXED NON-WEIGHT-BASED DOSE OF 840-MG IV LOADING D
     Route: 042
     Dates: start: 20190301
  2. CYCLOPHOSPHAMIDE. [Suspect]
     Active Substance: CYCLOPHOSPHAMIDE
     Indication: HER-2 POSITIVE BREAST CANCER
     Dosage: ON 01/FEB/2019, RECEIVED 844.4 MG MOST RECENT DOSE OF CYCLOPHOSAMIDE?CYCLOPHOSPHAMIDE 600 MG/M2 WILL
     Route: 042
     Dates: start: 20181204
  3. PACLITAXEL. [Suspect]
     Active Substance: PACLITAXEL
     Indication: HER-2 POSITIVE BREAST CANCER
     Dosage: ON 01/MAR/2019, RECEIVED 140.8 MG MOST RECENT DOSE AT 13.40?PACLITAXEL 80 MG/M2 WILL BE ADMINISTERED
     Route: 042
     Dates: start: 20190301
  4. L-THYROXIN [LEVOTHYROXINE] [Concomitant]
     Active Substance: LEVOTHYROXINE SODIUM
     Indication: HYPOTHYROIDISM
     Route: 048
     Dates: start: 20181203
  5. PANTOZOL [Concomitant]
     Active Substance: PANTOPRAZOLE SODIUM
     Indication: PROPHYLAXIS
     Route: 048
     Dates: start: 20181204
  6. TRASTUZUMAB. [Suspect]
     Active Substance: TRASTUZUMAB
     Indication: HER-2 POSITIVE BREAST CANCER
     Dosage: LOADING DOSE (560 MG)?TRASTUZUMAB WILL BE ADMINISTERED AS AN 8-MG/KG IV LOADING DOSE
     Route: 042
     Dates: start: 20190301
  7. TRASTUZUMAB. [Suspect]
     Active Substance: TRASTUZUMAB
     Dosage: MAINTAINANCE DOSE
     Route: 042
  8. DOXORUBICIN [Suspect]
     Active Substance: DOXORUBICIN
     Indication: HER-2 POSITIVE BREAST CANCER
     Dosage: DOXORUBICIN 60 MG/M2 WILL BE ADMINISTERED IV ON DAY 1 OF EACH CYCLE OF TREATMENT (AS PART OF EITHER
     Route: 042
     Dates: start: 20181204
  9. PERTUZUMAB. [Suspect]
     Active Substance: PERTUZUMAB
     Dosage: MAINTAINANCE DOSE
     Route: 042

REACTIONS (1)
  - Pulmonary embolism [Recovered/Resolved]

NARRATIVE: CASE EVENT DATE: 20190301
